FAERS Safety Report 7389061-8 (Version None)
Quarter: 2011Q2

REPORT INFORMATION
  Report Type: 
  Country: None (occurrence: None)
  Receive Date: 20110401
  Receipt Date: 20110323
  Transmission Date: 20111010
  Serious: Yes (Hospitalization, Other)
  Sender: FDA-Public Use
  Company Number: JP-ROCHE-636470

PATIENT
  Sex: Female
  Weight: 60 kg

DRUGS (22)
  1. PREDNISOLONE [Concomitant]
     Dosage: PERORAL AGENT
     Route: 048
     Dates: start: 20090421, end: 20090512
  2. PREDNISOLONE [Concomitant]
     Dosage: PERORAL AGENT
     Route: 048
     Dates: start: 20090302
  3. PREDNISOLONE [Concomitant]
     Dosage: PERORAL AGENT
     Route: 048
     Dates: start: 20090310, end: 20090324
  4. PREDNISOLONE [Concomitant]
     Dosage: PERORAL AGENT
     Route: 048
     Dates: start: 20090513, end: 20090501
  5. PREDNISOLONE [Concomitant]
     Dosage: PERORAL AGENT
     Route: 048
     Dates: start: 20090501, end: 20090601
  6. PREDNISOLONE [Concomitant]
     Dosage: PERORAL AGENT
     Route: 048
     Dates: start: 20090608, end: 20090617
  7. ACTEMRA [Suspect]
     Indication: STILL'S DISEASE ADULT ONSET
     Route: 041
     Dates: start: 20090319, end: 20090319
  8. PREDNISOLONE [Concomitant]
     Dosage: PERORAL AGENT
     Route: 048
     Dates: start: 20090303, end: 20090309
  9. PREDNISOLONE [Concomitant]
     Dosage: PERORAL AGENT
     Route: 048
     Dates: start: 20090717, end: 20090723
  10. PREDNISOLONE [Concomitant]
     Route: 048
     Dates: start: 20090801
  11. PREDNISOLONE [Concomitant]
     Dosage: PERORAL AGENT
     Route: 048
     Dates: start: 20090325, end: 20090330
  12. PREDNISOLONE [Concomitant]
     Dosage: PERORAL AGENT
     Route: 048
     Dates: start: 20090331, end: 20090403
  13. PREDNISOLONE [Concomitant]
     Dosage: PERORAL AGENT
     Route: 048
     Dates: start: 20090621, end: 20090624
  14. PREDNISOLONE [Concomitant]
     Dosage: PERORAL AGENT
     Route: 048
     Dates: start: 20090629, end: 20090701
  15. PREDNISOLONE [Concomitant]
     Dosage: PERORAL AGENT
     Route: 048
     Dates: start: 20090707, end: 20090709
  16. PREDNISOLONE [Concomitant]
     Dosage: PERORAL AGENT
     Route: 048
     Dates: start: 20090710, end: 20090716
  17. ACTEMRA [Suspect]
     Route: 041
     Dates: start: 20090628, end: 20090731
  18. PREDNISOLONE [Concomitant]
     Dosage: PERORAL AGENT
     Route: 048
     Dates: start: 20090404, end: 20090420
  19. PREDNISOLONE [Concomitant]
     Dosage: PERORAL AGENT
     Route: 048
     Dates: start: 20090618, end: 20090620
  20. PREDNISOLONE [Concomitant]
     Dosage: PERORAL AGENT
     Route: 048
     Dates: start: 20090625, end: 20090628
  21. PREDNISOLONE [Concomitant]
     Dosage: PERORAL AGENT
     Route: 048
     Dates: start: 20090702, end: 20090706
  22. PREDNISOLONE [Concomitant]
     Route: 048
     Dates: start: 20090724, end: 20090731

REACTIONS (3)
  - CLOSTRIDIUM BACTERAEMIA [None]
  - CYTOMEGALOVIRUS VIRAEMIA [None]
  - HISTIOCYTOSIS HAEMATOPHAGIC [None]
